FAERS Safety Report 17080611 (Version 1)
Quarter: 2019Q4

REPORT INFORMATION
  Report Type: Spontaneous
  Country: NL (occurrence: NL)
  Receive Date: 20191127
  Receipt Date: 20191127
  Transmission Date: 20200122
  Serious: Yes (Life-Threatening)
  Sender: FDA-Public Use
  Company Number: NL-TEVA-2019-NL-1142135

PATIENT
  Age: 48 Year
  Sex: Female
  Weight: 80 kg

DRUGS (5)
  1. OMEPRAZOL MAAGSAPRESISTENTE CAPSULE, 40 MG (MILLIGRAM) [Suspect]
     Active Substance: OMEPRAZOLE
     Indication: PRODUCT USED FOR UNKNOWN INDICATION
     Dosage: 1DD 40MG
     Dates: start: 2017, end: 20191022
  2. METOPROLOL TABLET MGA 50MG [Concomitant]
     Dosage: 1DD 100MG
  3. OXAZEPAM TABLET 10MG [Concomitant]
     Dosage: 3DD (10; 5; 50MG).1 DOSAGE FORMS PER 8 HRS
  4. VENLAFAXINE CAPSULE MGA 150MG [Concomitant]
     Dosage: 1DD 150MG
     Dates: start: 2001
  5. PERINDOPRIL TABLET 4MG [Concomitant]
     Dosage: 1DD 4MG
     Dates: start: 20190913

REACTIONS (2)
  - Hypokalaemia [Recovering/Resolving]
  - Hypomagnesaemia [Recovering/Resolving]

NARRATIVE: CASE EVENT DATE: 20191022
